FAERS Safety Report 14229105 (Version 1)
Quarter: 2017Q4

REPORT INFORMATION
  Report Type: Other
  Country: IT (occurrence: IT)
  Receive Date: 20171128
  Receipt Date: 20171128
  Transmission Date: 20180321
  Serious: Yes (Other)
  Sender: FDA-Public Use
  Company Number: IT-APOTEX-2017AP021725

PATIENT
  Age: 28 Year
  Sex: Female

DRUGS (2)
  1. QUETIAPINA DOC GENERICI COMPRESSE RIVESTITE CON FILM [Suspect]
     Active Substance: QUETIAPINE
     Indication: MAJOR DEPRESSION
     Dosage: 300 MG, DAILY
     Route: 048
  2. QUETIAPINA DOC GENERICI COMPRESSE RIVESTITE CON FILM [Suspect]
     Active Substance: QUETIAPINE
     Dosage: 800 MG, DAILY
     Route: 048

REACTIONS (1)
  - Hypomania [Recovered/Resolved]
